FAERS Safety Report 9790638 (Version 3)
Quarter: 2014Q1

REPORT INFORMATION
  Report Type: Spontaneous
  Country: US (occurrence: US)
  Receive Date: 20131231
  Receipt Date: 20140317
  Transmission Date: 20141002
  Serious: Yes (Death)
  Sender: FDA-Public Use
  Company Number: US-GLAXOSMITHKLINE-A1054877A

PATIENT
  Sex: Male

DRUGS (1)
  1. EPIVIR HBV [Suspect]
     Indication: INFECTION PROPHYLAXIS
     Dosage: 100MG UNKNOWN
     Route: 065
     Dates: start: 20130116

REACTIONS (1)
  - Death [Fatal]
